FAERS Safety Report 9160210 (Version 1)
Quarter: 2013Q1

REPORT INFORMATION
  Report Type: Report from Study
  Country: GB (occurrence: GB)
  Receive Date: 20130313
  Receipt Date: 20130313
  Transmission Date: 20140127
  Serious: Yes (Other)
  Sender: FDA-Public Use
  Company Number: GB-ROCHE-1199859

PATIENT
  Sex: 0
  Weight: 90.8 kg

DRUGS (1)
  1. VEMURAFENIB [Suspect]
     Indication: MALIGNANT MELANOMA
     Dosage: LAST DOSE PRIOR TO SAE:06/DEC/2012
     Route: 048
     Dates: start: 20111107

REACTIONS (1)
  - Squamous cell carcinoma of the oral cavity [Recovered/Resolved with Sequelae]
